FAERS Safety Report 8593359-5 (Version None)
Quarter: 2012Q3

REPORT INFORMATION
  Report Type: 
  Country: None (occurrence: None)
  Receive Date: 20120814
  Receipt Date: 20120806
  Transmission Date: 20120928
  Serious: Yes (Other)
  Sender: FDA-Public Use
  Company Number: US-JNJFOC-20120803891

PATIENT
  Sex: Female

DRUGS (4)
  1. BENADRYL [Suspect]
     Indication: THROAT IRRITATION
     Route: 048
     Dates: start: 20120801
  2. BENADRYL [Suspect]
     Indication: UNEVALUABLE EVENT
     Route: 048
     Dates: start: 20120801
  3. BENADRYL [Suspect]
     Indication: RHINORRHOEA
     Route: 048
     Dates: start: 20120801
  4. BENADRYL [Suspect]
     Indication: LACRIMATION INCREASED
     Route: 048
     Dates: start: 20120801

REACTIONS (2)
  - DIARRHOEA [None]
  - OFF LABEL USE [None]
